FAERS Safety Report 25660647 (Version 3)
Quarter: 2025Q3

REPORT INFORMATION
  Report Type: Spontaneous
  Country: JP (occurrence: JP)
  Receive Date: 20250808
  Receipt Date: 20250926
  Transmission Date: 20251021
  Serious: Yes (Life-Threatening, Other)
  Sender: LANTHEUS MEDICAL IMAGING
  Company Number: JP-LANTHEUS-LMI-2025-00996

PATIENT
  Sex: Female

DRUGS (2)
  1. CARDIOLITE [Suspect]
     Active Substance: TECHNETIUM TC-99M SESTAMIBI
     Indication: Scan myocardial perfusion
     Route: 042
     Dates: start: 20250711, end: 20250711
  2. ADENOSINE [Suspect]
     Active Substance: ADENOSINE
     Indication: Scan myocardial perfusion
     Route: 042
     Dates: start: 20250711, end: 20250711

REACTIONS (4)
  - Asthma [Recovered/Resolved]
  - Blood pressure increased [Recovered/Resolved]
  - Heart rate increased [Recovered/Resolved]
  - Dyspnoea [Recovered/Resolved]

NARRATIVE: CASE EVENT DATE: 20250711
